FAERS Safety Report 9016781 (Version 1)
Quarter: 2013Q1

REPORT INFORMATION
  Report Type: Spontaneous
  Country: CO (occurrence: CO)
  Receive Date: 20130116
  Receipt Date: 20130116
  Transmission Date: 20140127
  Serious: Yes (Death)
  Sender: FDA-Public Use
  Company Number: CO-JNJFOC-20130107896

PATIENT
  Age: 83 Year
  Sex: Female

DRUGS (1)
  1. REMINYL ER [Suspect]
     Indication: DEMENTIA
     Route: 048
     Dates: start: 20120817

REACTIONS (1)
  - Myocardial infarction [Fatal]
